FAERS Safety Report 6837618-2 (Version None)
Quarter: 2010Q3

REPORT INFORMATION
  Report Type: 
  Country: None (occurrence: None)
  Receive Date: 20100708
  Receipt Date: 20100625
  Transmission Date: 20110219
  Serious: Yes (Hospitalization, Disabling, Other)
  Sender: FDA-Public Use
  Company Number: TPG2010A00335

PATIENT
  Age: 54 Year
  Sex: Male

DRUGS (4)
  1. AGOPTON (LANSOPRAZOLE) PRIOR USE OF EQUIVALENT PRODUCT: YES [Suspect]
     Indication: REFLUX OESOPHAGITIS
     Dosage: 15 MG (15 MG, 1 IN 1 D) PER ORAL
     Route: 048
     Dates: start: 19990101, end: 20100501
  2. MORPHIN ^AL^ RETARD (MORPHINE) [Concomitant]
  3. METAMIZOLE (METAMIZOLE) [Concomitant]
  4. ARCOXIA [Concomitant]

REACTIONS (8)
  - ARTHRALGIA [None]
  - DRUG EFFECT DECREASED [None]
  - IMPAIRED WORK ABILITY [None]
  - INTERVERTEBRAL DISC PROTRUSION [None]
  - MYALGIA [None]
  - MYOSCLEROSIS [None]
  - NEURALGIA [None]
  - OSTEOARTHRITIS [None]
